FAERS Safety Report 21238372 (Version 1)
Quarter: 2022Q3

REPORT INFORMATION
  Report Type: Spontaneous
  Country: AR (occurrence: AR)
  Receive Date: 20220822
  Receipt Date: 20220822
  Transmission Date: 20221027
  Serious: Yes (Other)
  Sender: FDA-Public Use
  Company Number: AR-PFIZER INC-PV202200046093

PATIENT
  Age: 76 Year
  Sex: Female

DRUGS (1)
  1. IBRANCE [Suspect]
     Active Substance: PALBOCICLIB
     Indication: Breast cancer
     Dosage: UNK

REACTIONS (9)
  - Liver disorder [Unknown]
  - Pyelocaliectasis [Unknown]
  - Cardiomegaly [Unknown]
  - Hiatus hernia [Unknown]
  - Lipomatosis [Unknown]
  - Renal cyst [Unknown]
  - Lithiasis [Unknown]
  - Arteriosclerosis [Unknown]
  - Osteoarthritis [Unknown]

NARRATIVE: CASE EVENT DATE: 20200720
